FAERS Safety Report 11911151 (Version 1)
Quarter: 2016Q1

REPORT INFORMATION
  Report Type: Spontaneous
  Country: US (occurrence: US)
  Receive Date: 20160112
  Receipt Date: 20160112
  Transmission Date: 20160526
  Serious: No
  Sender: FDA-Public Use
  Company Number: US-TARO-2015TAR00483

PATIENT
  Age: 86 Year
  Sex: Female
  Weight: 49.89 kg

DRUGS (2)
  1. KETOCONAZOLE CREAM 2% [Suspect]
     Active Substance: KETOCONAZOLE
     Indication: FUNGAL INFECTION
     Dosage: APPLIED ONCE
     Route: 061
     Dates: start: 201505, end: 201505
  2. UNSPECIFIED PRODUCTS [Concomitant]
     Active Substance: UNSPECIFIED INGREDIENT

REACTIONS (4)
  - Hypersensitivity [Recovering/Resolving]
  - Discomfort [Recovering/Resolving]
  - Malaise [Not Recovered/Not Resolved]
  - Rash erythematous [Recovering/Resolving]

NARRATIVE: CASE EVENT DATE: 201505
